FAERS Safety Report 9720472 (Version 4)
Quarter: 2014Q1

REPORT INFORMATION
  Report Type: Spontaneous
  Country: JP (occurrence: JP)
  Receive Date: 20131129
  Receipt Date: 20140224
  Transmission Date: 20141002
  Serious: Yes (Hospitalization)
  Sender: FDA-Public Use
  Company Number: JP-JNJFOC-20131116023

PATIENT
  Age: 54 Year
  Sex: Female
  Weight: 51 kg

DRUGS (16)
  1. REMICADE [Suspect]
     Indication: CROHN^S DISEASE
     Dosage: 40TH DOSE
     Route: 042
     Dates: start: 20131226
  2. REMICADE [Suspect]
     Indication: CROHN^S DISEASE
     Route: 042
     Dates: start: 20130731
  3. REMICADE [Suspect]
     Indication: CROHN^S DISEASE
     Dosage: 40TH DOSE
     Route: 042
     Dates: start: 20130924
  4. REMICADE [Suspect]
     Indication: CROHN^S DISEASE
     Route: 042
     Dates: start: 20121211
  5. REMICADE [Suspect]
     Indication: CROHN^S DISEASE
     Route: 042
     Dates: start: 20071206
  6. IMURAN [Suspect]
     Indication: CROHN^S DISEASE
     Route: 048
     Dates: start: 20090312
  7. ISCOTIN [Suspect]
     Indication: ANTIBIOTIC PROPHYLAXIS
     Route: 048
     Dates: start: 20131113, end: 20131117
  8. ISCOTIN [Suspect]
     Indication: ANTIBIOTIC PROPHYLAXIS
     Route: 048
     Dates: start: 20071205, end: 20081015
  9. ISCOTIN [Suspect]
     Indication: ANTIBIOTIC PROPHYLAXIS
     Route: 048
     Dates: start: 20131126
  10. RIFAMPICIN [Suspect]
     Indication: PULMONARY TUBERCULOSIS
     Route: 065
     Dates: start: 20131113, end: 20131117
  11. RIFAMPICIN [Suspect]
     Indication: PULMONARY TUBERCULOSIS
     Route: 065
     Dates: start: 20131126
  12. ESANBUTOL [Suspect]
     Indication: PULMONARY TUBERCULOSIS
     Route: 065
     Dates: start: 20131113, end: 20131117
  13. PYRAMIDE [Suspect]
     Indication: PULMONARY TUBERCULOSIS
     Route: 065
     Dates: start: 20131113, end: 20131117
  14. GASTER D [Concomitant]
     Indication: CROHN^S DISEASE
     Route: 048
  15. MECOBALAMIN [Concomitant]
     Indication: CROHN^S DISEASE
     Route: 048
  16. CINAL [Concomitant]
     Indication: CROHN^S DISEASE
     Route: 048

REACTIONS (3)
  - Pulmonary tuberculosis [Recovering/Resolving]
  - Pneumonia [Recovering/Resolving]
  - Rash [Unknown]
